FAERS Safety Report 22131972 (Version 1)
Quarter: 2023Q1

REPORT INFORMATION
  Report Type: Spontaneous
  Country: US (occurrence: US)
  Receive Date: 20230323
  Receipt Date: 20230323
  Transmission Date: 20230418
  Serious: No
  Sender: FDA-Public Use
  Company Number: US-BIOGEN-2023BI01194221

PATIENT
  Age: 40 Year
  Sex: Female

DRUGS (1)
  1. VUMERITY [Suspect]
     Active Substance: DIROXIMEL FUMARATE
     Indication: Multiple sclerosis
     Route: 050
     Dates: start: 20201120

REACTIONS (5)
  - Sinus congestion [Unknown]
  - Sinus disorder [Unknown]
  - Eye swelling [Unknown]
  - Throat tightness [Unknown]
  - Headache [Unknown]

NARRATIVE: CASE EVENT DATE: 20221101
